FAERS Safety Report 18124435 (Version 3)
Quarter: 2020Q3

REPORT INFORMATION
  Report Type: Spontaneous
  Country: US (occurrence: US)
  Receive Date: 20200807
  Receipt Date: 20200925
  Transmission Date: 20201103
  Serious: No
  Sender: FDA-Public Use
  Company Number: US-PFIZER INC-2020289159

PATIENT
  Sex: Female

DRUGS (5)
  1. HYDROCORTISONE. [Suspect]
     Active Substance: HYDROCORTISONE
     Dosage: UNK WITH EXTRA 10 OR 20 MG, DAILY (OFTEN TOOK AN EXTRA 10 OR 20 MGS EACH DAY)
  2. HYDROCORTISONE. [Suspect]
     Active Substance: HYDROCORTISONE
     Dosage: UNK
     Dates: end: 20200622
  3. HYDROCORTISONE. [Suspect]
     Active Substance: HYDROCORTISONE
     Dosage: 10 MG, 4X/DAY
     Route: 048
  4. HYDROCORTISONE. [Suspect]
     Active Substance: HYDROCORTISONE
     Indication: ADDISON^S DISEASE
     Dosage: 30?40 MG, DAILY (TAKE 30 TO 40 MGS A DAY)
  5. HYDROCORTISONE. [Suspect]
     Active Substance: HYDROCORTISONE
     Dosage: 10 MG, 4X/DAY
     Route: 048

REACTIONS (17)
  - Counterfeit product administered [Unknown]
  - Fatigue [Unknown]
  - Diarrhoea [Unknown]
  - Dyspepsia [Unknown]
  - Nausea [Recovering/Resolving]
  - Expired product administered [Unknown]
  - Asthenia [Unknown]
  - Stress [Unknown]
  - Chest pain [Recovered/Resolved]
  - Myalgia [Recovered/Resolved]
  - Depression [Unknown]
  - Fear [Unknown]
  - Intentional product misuse [Unknown]
  - Gait disturbance [Recovered/Resolved]
  - Illness [Unknown]
  - Suspected counterfeit product [Unknown]
  - Flatulence [Unknown]

NARRATIVE: CASE EVENT DATE: 202006
